FAERS Safety Report 13942723 (Version 1)
Quarter: 2017Q3

REPORT INFORMATION
  Report Type: Spontaneous
  Country: US (occurrence: None)
  Receive Date: 20170907
  Receipt Date: 20170907
  Transmission Date: 20171127
  Serious: Yes (Death)
  Sender: FDA-Public Use
  Company Number: None

PATIENT
  Age: 46 Year
  Sex: Male
  Weight: 116 kg

DRUGS (2)
  1. LEUPROLIDE ACETATE. [Suspect]
     Active Substance: LEUPROLIDE ACETATE
     Dates: end: 20160225
  2. CASODEX [Suspect]
     Active Substance: BICALUTAMIDE
     Dates: end: 20160501

REACTIONS (1)
  - Performance status decreased [None]

NARRATIVE: CASE EVENT DATE: 20160225
